FAERS Safety Report 22015704 (Version 2)
Quarter: 2023Q1

REPORT INFORMATION
  Report Type: Spontaneous
  Country: BR (occurrence: BR)
  Receive Date: 20230221
  Receipt Date: 20230314
  Transmission Date: 20230417
  Serious: Yes (Hospitalization)
  Sender: FDA-Public Use
  Company Number: BR-GLAXOSMITHKLINE-BR2023AMR028419

PATIENT

DRUGS (1)
  1. ALBUTEROL [Suspect]
     Active Substance: ALBUTEROL
     Indication: Asthmatic crisis
     Dosage: 4 PUFF(S), Z (EVERY 6 WEEKS)
     Dates: start: 20230212

REACTIONS (6)
  - Malaise [Unknown]
  - Respiration abnormal [Unknown]
  - Condition aggravated [Unknown]
  - Product use issue [Unknown]
  - Drug ineffective [Unknown]
  - Product complaint [Unknown]
